FAERS Safety Report 9025239 (Version 1)
Quarter: 2013Q1

REPORT INFORMATION
  Report Type: Spontaneous
  Country: CH (occurrence: CH)
  Receive Date: 20130122
  Receipt Date: 20130122
  Transmission Date: 20140127
  Serious: Yes (Life-Threatening, Hospitalization)
  Sender: FDA-Public Use
  Company Number: CH-TEVA-381355USA

PATIENT
  Age: 64 Year
  Sex: Male
  Weight: 85 kg

DRUGS (7)
  1. TREANDA [Suspect]
     Indication: CHRONIC LYMPHOCYTIC LEUKAEMIA
     Route: 041
     Dates: start: 20121204, end: 20121205
  2. MABTHERA [Suspect]
     Indication: CHRONIC LYMPHOCYTIC LEUKAEMIA
     Route: 041
     Dates: start: 20121204, end: 20121204
  3. SINTROM [Suspect]
     Indication: EMBOLISM VENOUS
     Route: 048
     Dates: start: 201112, end: 20121215
  4. TAVEGYL [Concomitant]
     Indication: PROPHYLACTIC CHEMOTHERAPY
     Dosage: 4 MILLIGRAM DAILY;
     Dates: start: 20121204, end: 20121205
  5. ZYLORIC [Concomitant]
     Indication: PROPHYLACTIC CHEMOTHERAPY
     Route: 048
     Dates: start: 20121204, end: 20121219
  6. INDOCID [Concomitant]
     Indication: GOUT
     Route: 048
  7. COLCHICINE [Concomitant]
     Indication: GOUT
     Route: 048
     Dates: start: 20121221, end: 20121222

REACTIONS (2)
  - Cardiac arrest [Recovered/Resolved]
  - Myocardial infarction [Recovering/Resolving]
